FAERS Safety Report 21465784 (Version 1)
Quarter: 2022Q4

REPORT INFORMATION
  Report Type: Spontaneous
  Country: CA (occurrence: CA)
  Receive Date: 20221017
  Receipt Date: 20221017
  Transmission Date: 20230113
  Serious: Yes (Other)
  Sender: FDA-Public Use
  Company Number: CA-BAUSCH-BL-2022-023172

PATIENT
  Sex: Female

DRUGS (1)
  1. CONTRAVE [Suspect]
     Active Substance: BUPROPION HYDROCHLORIDE\NALTREXONE HYDROCHLORIDE
     Indication: Product used for unknown indication
     Dosage: 90/8 MG, 1TAB/DAY
     Route: 048
     Dates: start: 20221003

REACTIONS (4)
  - Angina pectoris [Unknown]
  - Vomiting [Unknown]
  - Nausea [Unknown]
  - Feeling hot [Unknown]

NARRATIVE: CASE EVENT DATE: 20221001
